FAERS Safety Report 12142459 (Version 1)
Quarter: 2016Q1

REPORT INFORMATION
  Report Type: Spontaneous
  Country: US (occurrence: US)
  Receive Date: 20160303
  Receipt Date: 20160303
  Transmission Date: 20160526
  Serious: Yes (Other)
  Sender: FDA-Public Use
  Company Number: US-HQ SPECIALTY-US-2015INT000384

PATIENT

DRUGS (1)
  1. TAXOL [Suspect]
     Active Substance: PACLITAXEL
     Indication: CHEMOTHERAPY
     Dosage: DF
     Route: 042
     Dates: end: 200608

REACTIONS (1)
  - Neuropathy peripheral [Recovering/Resolving]

NARRATIVE: CASE EVENT DATE: 200608
